FAERS Safety Report 21244082 (Version 1)
Quarter: 2022Q3

REPORT INFORMATION
  Report Type: Spontaneous
  Country: US (occurrence: US)
  Receive Date: 20220823
  Receipt Date: 20220823
  Transmission Date: 20221027
  Serious: No
  Sender: FDA-Public Use
  Company Number: US-BRISTOL-MYERS SQUIBB COMPANY-2022-087821

PATIENT
  Age: 63 Year
  Sex: Female

DRUGS (1)
  1. ABRAXANE [Suspect]
     Active Substance: PACLITAXEL
     Indication: Pancreatic carcinoma
     Dosage: DOSE : 215 MG;     FREQ : ^215 MG ON DAY 1, 8 ,15^
     Route: 065
     Dates: start: 20220301, end: 20220602

REACTIONS (1)
  - Intentional product use issue [Unknown]
